FAERS Safety Report 9007945 (Version 4)
Quarter: 2013Q2

REPORT INFORMATION
  Report Type: Report from Study
  Country: CA (occurrence: CA)
  Receive Date: 20130111
  Receipt Date: 20130606
  Transmission Date: 20140414
  Serious: Yes (Other)
  Sender: FDA-Public Use
  Company Number: CA-JNJFOC-20130103420

PATIENT
  Sex: Male
  Weight: 57 kg

DRUGS (4)
  1. REMICADE [Suspect]
     Indication: CROHN^S DISEASE
     Dosage: X 52 WEEKS
     Route: 042
     Dates: start: 20090526
  2. CLONAZEPAM [Concomitant]
     Route: 048
  3. PREDNISONE [Concomitant]
     Route: 048
  4. FLAGYL [Concomitant]
     Route: 065

REACTIONS (2)
  - Nephrolithiasis [Recovering/Resolving]
  - Kidney infection [Unknown]
